FAERS Safety Report 18794252 (Version 1)
Quarter: 2021Q1

REPORT INFORMATION
  Report Type: Spontaneous
  Country: US (occurrence: US)
  Receive Date: 20210127
  Receipt Date: 20210127
  Transmission Date: 20210419
  Serious: No
  Sender: FDA-Public Use
  Company Number: US-PERRIGO-20US008734

PATIENT
  Age: 7 Month
  Sex: Female
  Weight: 6.8 kg

DRUGS (3)
  1. IBUPROFEN. [Suspect]
     Active Substance: IBUPROFEN
     Indication: TEETHING
     Dosage: 50 MG, PRN
     Route: 048
     Dates: start: 202004, end: 20200615
  2. PROBIOTICS NOS [Concomitant]
     Active Substance: PROBIOTICS NOS
     Indication: SUPPLEMENTATION THERAPY
     Dosage: UNK
     Route: 065
     Dates: start: 202006
  3. INFANTS TYLENOL [Concomitant]
     Active Substance: ACETAMINOPHEN
     Indication: TEETHING
     Dosage: UNK
     Route: 065
     Dates: start: 2020

REACTIONS (1)
  - Throat irritation [Recovered/Resolved]

NARRATIVE: CASE EVENT DATE: 20200615
